FAERS Safety Report 10930265 (Version 2)
Quarter: 2015Q3

REPORT INFORMATION
  Report Type: Spontaneous
  Country: US (occurrence: US)
  Receive Date: 20150319
  Receipt Date: 20150824
  Transmission Date: 20151125
  Serious: No
  Sender: FDA-Public Use
  Company Number: US-PFIZER INC-2015096140

PATIENT
  Sex: Female

DRUGS (23)
  1. CIPRO [Suspect]
     Active Substance: CIPROFLOXACIN HYDROCHLORIDE
     Dosage: UNK
  2. TORADOL [Suspect]
     Active Substance: KETOROLAC TROMETHAMINE
     Dosage: UNK
  3. LEXAPRO [Suspect]
     Active Substance: ESCITALOPRAM OXALATE
     Dosage: UNK
  4. SEPTRA DS [Suspect]
     Active Substance: SULFAMETHOXAZOLE\TRIMETHOPRIM
     Dosage: UNK
  5. PENICILLIN G BENZATHINE/PENICILLIN G PROCAINE [Suspect]
     Active Substance: PENICILLIN G BENZATHINE\PENICILLIN G PROCAINE
     Dosage: UNK
  6. ZOLPIDEM TARTRATE. [Suspect]
     Active Substance: ZOLPIDEM TARTRATE
     Dosage: UNK
  7. WELLBUTRIN [Suspect]
     Active Substance: BUPROPION HYDROCHLORIDE
     Dosage: UNK
  8. BACTRIM [Suspect]
     Active Substance: SULFAMETHOXAZOLE\TRIMETHOPRIM
     Dosage: UNK
  9. CEPHALEXIN. [Suspect]
     Active Substance: CEPHALEXIN
     Dosage: UNK
  10. PROCHLORPERAZINE. [Suspect]
     Active Substance: PROCHLORPERAZINE
     Dosage: UNK
  11. DIVALPROEX [Suspect]
     Active Substance: DIVALPROEX SODIUM
     Dosage: UNK
  12. CYMBALTA [Suspect]
     Active Substance: DULOXETINE HYDROCHLORIDE
     Dosage: UNK
  13. AMITRIPTYLINE [Suspect]
     Active Substance: AMITRIPTYLINE
     Dosage: UNK
  14. PHENAZOPYRIDINE. [Suspect]
     Active Substance: PHENAZOPYRIDINE
     Dosage: UNK
  15. HALOPERIDOL. [Suspect]
     Active Substance: HALOPERIDOL
     Dosage: UNK
  16. KEFLEX [Suspect]
     Active Substance: CEPHALEXIN
     Dosage: UNK
  17. METOCLOPRAMIDE HCL [Suspect]
     Active Substance: METOCLOPRAMIDE HYDROCHLORIDE
     Dosage: UNK
  18. METHADONE [Suspect]
     Active Substance: METHADONE HYDROCHLORIDE
     Dosage: UNK
  19. DEPAKOTE [Suspect]
     Active Substance: DIVALPROEX SODIUM
     Dosage: UNK
  20. BACLOFEN. [Suspect]
     Active Substance: BACLOFEN
     Dosage: UNK
  21. BUPROPION. [Suspect]
     Active Substance: BUPROPION
     Dosage: UNK
  22. MAXALT [Suspect]
     Active Substance: RIZATRIPTAN BENZOATE
     Dosage: UNK
  23. DOXYCYCLINE CALCIUM [Suspect]
     Active Substance: DOXYCYCLINE CALCIUM

REACTIONS (1)
  - Drug hypersensitivity [Unknown]
